FAERS Safety Report 9607540 (Version 1)
Quarter: 2013Q4

REPORT INFORMATION
  Report Type: Spontaneous
  Country: US (occurrence: None)
  Receive Date: 20131007
  Receipt Date: 20131007
  Transmission Date: 20140711
  Serious: No
  Sender: FDA-Public Use
  Company Number: None

PATIENT
  Age: 34 Year
  Sex: Female
  Weight: 77.11 kg

DRUGS (1)
  1. AMOXICILLIN [Suspect]
     Indication: PROPHYLAXIS
     Dosage: 1 PILL, THREE TIMES DAILY, TAKEN BY MOUTH
     Route: 048
     Dates: start: 20130925, end: 20131002

REACTIONS (3)
  - Vomiting [None]
  - Hyperhidrosis [None]
  - Fatigue [None]
